FAERS Safety Report 8482837-5 (Version None)
Quarter: 2012Q2

REPORT INFORMATION
  Report Type: 
  Country: None (occurrence: None)
  Receive Date: 20120625
  Receipt Date: 20120612
  Transmission Date: 20120825
  Serious: Yes (Other)
  Sender: FDA-Public Use
  Company Number: 2012AP001829

PATIENT
  Age: 80 Year
  Sex: Male

DRUGS (1)
  1. OMEPRAZOLE [Suspect]
     Indication: PRODUCT USED FOR UNKNOWN INDICATION

REACTIONS (21)
  - CONSTIPATION [None]
  - PSYCHIATRIC SYMPTOM [None]
  - MENTAL IMPAIRMENT [None]
  - PUSTULAR PSORIASIS [None]
  - DERMATITIS ATOPIC [None]
  - RASH PRURITIC [None]
  - HYPERSENSITIVITY [None]
  - EOSINOPHILIA [None]
  - RASH PAPULAR [None]
  - ECZEMA [None]
  - INFECTION [None]
  - ULCER [None]
  - DRUG INTERACTION [None]
  - CEREBROVASCULAR ACCIDENT [None]
  - CONDITION AGGRAVATED [None]
  - PRURITUS [None]
  - RASH PUSTULAR [None]
  - SWELLING [None]
  - BLOOD CHOLESTEROL INCREASED [None]
  - DRUG INEFFECTIVE [None]
  - INSOMNIA [None]
